FAERS Safety Report 9562233 (Version 1)
Quarter: 2013Q3

REPORT INFORMATION
  Report Type: Spontaneous
  Country: GB (occurrence: GB)
  Receive Date: 20130927
  Receipt Date: 20130927
  Transmission Date: 20140515
  Serious: Yes (Disabling)
  Sender: FDA-Public Use
  Company Number: GB-AMGEN-GBRSP2013066743

PATIENT
  Age: 73 Year
  Sex: Female

DRUGS (5)
  1. PROLIA [Suspect]
     Indication: OSTEOPOROSIS
     Dosage: UNK
     Route: 058
     Dates: start: 201205
  2. CALCICHEW D3 [Concomitant]
     Indication: OSTEOPOROSIS
     Dosage: 1 DF, BID
     Route: 048
     Dates: start: 2008
  3. SALBUTAMOL [Concomitant]
     Indication: CHRONIC OBSTRUCTIVE PULMONARY DISEASE
     Dosage: 100 MUG, BID
     Dates: start: 2005
  4. TIOTROPIUM [Concomitant]
     Indication: CHRONIC OBSTRUCTIVE PULMONARY DISEASE
     Dosage: 18 MUG, QD
     Dates: start: 2005
  5. TRAMADOL [Concomitant]
     Indication: OSTEOARTHRITIS
     Dosage: 1 DF, QID
     Route: 048
     Dates: start: 2008

REACTIONS (2)
  - Dysphonia [Recovered/Resolved]
  - Vocal cord disorder [Recovered/Resolved]
